FAERS Safety Report 11245027 (Version 2)
Quarter: 2015Q4

REPORT INFORMATION
  Report Type: Spontaneous
  Country: US (occurrence: US)
  Receive Date: 20150707
  Receipt Date: 20151110
  Transmission Date: 20160304
  Serious: Yes (Other)
  Sender: FDA-Public Use
  Company Number: US-TAKEDA-2015TUS008664

PATIENT
  Age: 43 Year
  Sex: Female
  Weight: 103.4 kg

DRUGS (2)
  1. CONTRAVE [Suspect]
     Active Substance: BUPROPION HYDROCHLORIDE\NALTREXONE HYDROCHLORIDE
     Indication: OBESITY
     Dosage: 8/90MG, QD
     Route: 048
     Dates: start: 20150618, end: 20150624
  2. CONTRAVE [Suspect]
     Active Substance: BUPROPION HYDROCHLORIDE\NALTREXONE HYDROCHLORIDE
     Dosage: 8/90MG, BID
     Route: 048
     Dates: start: 20150625, end: 20150630

REACTIONS (7)
  - Hangover [Recovering/Resolving]
  - Abnormal dreams [Recovered/Resolved]
  - Psychiatric symptom [Not Recovered/Not Resolved]
  - Drug ineffective [Unknown]
  - Depressed mood [Not Recovered/Not Resolved]
  - Suicidal ideation [Not Recovered/Not Resolved]
  - Panic attack [Recovering/Resolving]

NARRATIVE: CASE EVENT DATE: 20150627
